FAERS Safety Report 9343238 (Version 1)
Quarter: 2013Q2

REPORT INFORMATION
  Report Type: Spontaneous
  Country: CN (occurrence: CN)
  Receive Date: 20130611
  Receipt Date: 20130611
  Transmission Date: 20140414
  Serious: Yes (Hospitalization)
  Sender: FDA-Public Use
  Company Number: CN-BAXTER-2013BAX020941

PATIENT
  Age: 56 Year
  Sex: Male
  Weight: 70 kg

DRUGS (2)
  1. LOW CALCIUM PERITONEAL DIALYSIS SOLUTION ( LACTATE- G2.5%) [Suspect]
     Indication: PERITONEAL DIALYSIS
     Route: 033
     Dates: start: 20121101, end: 20121128
  2. MEROPENEM [Suspect]
     Indication: LUNG INFECTION
     Route: 065

REACTIONS (4)
  - Lung infection [Recovering/Resolving]
  - Condition aggravated [Recovering/Resolving]
  - Oedema peripheral [Recovering/Resolving]
  - Skin exfoliation [Recovering/Resolving]
